FAERS Safety Report 7419293-1 (Version None)
Quarter: 2011Q2

REPORT INFORMATION
  Report Type: 
  Country: None (occurrence: None)
  Receive Date: 20110415
  Receipt Date: 20110408
  Transmission Date: 20111010
  Serious: Yes (Other)
  Sender: FDA-Public Use
  Company Number: US-ABBOTT-11P-163-0718727-00

PATIENT
  Age: 77 Year
  Sex: Female

DRUGS (6)
  1. PREMARIN [Concomitant]
     Indication: BONE DISORDER
     Route: 048
     Dates: start: 19880101
  2. FOSAMAX [Concomitant]
     Indication: BONE DISORDER
     Route: 048
  3. LIPITOR [Concomitant]
     Indication: BLOOD CHOLESTEROL INCREASED
     Route: 048
  4. TAZORAC TOPICAL SUSPENSION [Concomitant]
     Indication: PSORIASIS
     Route: 061
     Dates: start: 20100901
  5. TAZORAC [Concomitant]
     Indication: PSORIASIS
     Route: 061
     Dates: start: 20100901
  6. HUMIRA [Suspect]
     Indication: PSORIASIS
     Dates: start: 20100901

REACTIONS (2)
  - ELECTROCARDIOGRAM ABNORMAL [None]
  - MITRAL VALVE INCOMPETENCE [None]
